FAERS Safety Report 23671116 (Version 1)
Quarter: 2024Q1

REPORT INFORMATION
  Report Type: Spontaneous
  Country: IL (occurrence: IL)
  Receive Date: 20240326
  Receipt Date: 20240326
  Transmission Date: 20240410
  Serious: Yes (Hospitalization)
  Sender: FDA-Public Use
  Company Number: IL-BoehringerIngelheim-2024-BI-016329

PATIENT
  Sex: Male

DRUGS (1)
  1. EMPAGLIFLOZIN\METFORMIN HYDROCHLORIDE [Suspect]
     Active Substance: EMPAGLIFLOZIN\METFORMIN HYDROCHLORIDE
     Indication: Diabetes mellitus

REACTIONS (4)
  - Pyrexia [Unknown]
  - Cerebrovascular accident [Recovering/Resolving]
  - Lactic acidosis [Unknown]
  - Urine ketone body present [Unknown]

NARRATIVE: CASE EVENT DATE: 20240201
